FAERS Safety Report 23451934 (Version 1)
Quarter: 2024Q1

REPORT INFORMATION
  Report Type: Spontaneous
  Country: US (occurrence: None)
  Receive Date: 20240127
  Receipt Date: 20240127
  Transmission Date: 20240409
  Serious: Yes (Other)
  Sender: FDA-Public Use
  Company Number: None

PATIENT
  Age: 40 Year
  Sex: Female
  Weight: 61.65 kg

DRUGS (1)
  1. MONISTAT 1 COMBINATION PACK [Suspect]
     Active Substance: MICONAZOLE NITRATE
     Indication: Fungal infection
     Dates: start: 20240125, end: 20240126

REACTIONS (4)
  - Genital burning sensation [None]
  - Genital swelling [None]
  - Genital rash [None]
  - Genital blister [None]

NARRATIVE: CASE EVENT DATE: 20240125
